FAERS Safety Report 17399357 (Version 1)
Quarter: 2020Q1

REPORT INFORMATION
  Report Type: Spontaneous
  Country: US (occurrence: US)
  Receive Date: 20200211
  Receipt Date: 20200211
  Transmission Date: 20200409
  Serious: No
  Sender: FDA-Public Use
  Company Number: US-SHIRE-US202004942

PATIENT
  Sex: Female

DRUGS (2)
  1. XIIDRA [Suspect]
     Active Substance: LIFITEGRAST
     Dosage: 2 GTT DROPS, 2X/DAY:BID
     Route: 047
     Dates: start: 20200122
  2. XIIDRA [Suspect]
     Active Substance: LIFITEGRAST
     Indication: DRY EYE
     Dosage: 4 GTT DROPS, 1X/DAY:QD
     Route: 047

REACTIONS (4)
  - Frustration tolerance decreased [Unknown]
  - Vision blurred [Unknown]
  - Eye irritation [Unknown]
  - Depression [Unknown]
